FAERS Safety Report 19931142 (Version 2)
Quarter: 2021Q4

REPORT INFORMATION
  Report Type: Spontaneous
  Country: JP (occurrence: JP)
  Receive Date: 20211008
  Receipt Date: 20211118
  Transmission Date: 20220304
  Serious: Yes (Other)
  Sender: FDA-Public Use
  Company Number: JP-MSD-M2021-23262

PATIENT
  Age: 78 Year
  Sex: Male

DRUGS (2)
  1. KEYTRUDA [Suspect]
     Active Substance: PEMBROLIZUMAB
     Indication: Squamous cell carcinoma of lung
     Dosage: 200 MILLIGRAM, Q3W
     Route: 041
     Dates: start: 20210709
  2. PACLITAXEL [Concomitant]
     Active Substance: PACLITAXEL
     Dosage: UNK
     Route: 065
     Dates: start: 20210709, end: 20210917

REACTIONS (1)
  - Musculoskeletal toxicity [Unknown]

NARRATIVE: CASE EVENT DATE: 20210806
